FAERS Safety Report 6135777-0 (Version None)
Quarter: 2009Q1

REPORT INFORMATION
  Report Type: 
  Country: None (occurrence: None)
  Receive Date: 20090327
  Receipt Date: 20090313
  Transmission Date: 20090719
  Serious: Yes (Life-Threatening, Hospitalization)
  Sender: FDA-Public Use
  Company Number: CH-GENENTECH-279725

PATIENT
  Age: 67 Year
  Sex: Male

DRUGS (5)
  1. MABTHERA [Suspect]
     Indication: CHRONIC LYMPHOCYTIC LEUKAEMIA
     Dosage: 700 MG, UNK
     Route: 042
     Dates: start: 20090214, end: 20090214
  2. FLUDARA [Suspect]
     Indication: CHRONIC LYMPHOCYTIC LEUKAEMIA
     Dosage: 50 MG, QD
     Route: 042
     Dates: start: 20090215, end: 20090217
  3. CYCLOPHOSPHAMIDE [Suspect]
     Indication: CHRONIC LYMPHOCYTIC LEUKAEMIA
     Dosage: 500 MG, QD
     Route: 042
     Dates: start: 20090215, end: 20090217
  4. COZAAR [Concomitant]
     Indication: DRUG USE FOR UNKNOWN INDICATION
  5. SIMCOR [Concomitant]
     Indication: DRUG USE FOR UNKNOWN INDICATION

REACTIONS (1)
  - VENTRICULAR FIBRILLATION [None]
